FAERS Safety Report 5518516-3 (Version None)
Quarter: 2008Q1

REPORT INFORMATION
  Report Type: 
  Country: None (occurrence: None)
  Receive Date: 20071115
  Receipt Date: 20071109
  Transmission Date: 20080703
  Serious: Yes (Other)
  Sender: FDA-Public Use
  Company Number: CZ-BRISTOL-MYERS SQUIBB COMPANY-13982293

PATIENT
  Age: 67 Year
  Sex: Male

DRUGS (4)
  1. CETUXIMAB [Suspect]
     Indication: COLORECTAL CANCER
     Dosage: CETUXIMAB 2MG/ML.
     Route: 042
     Dates: start: 20060526
  2. FLUOROURACIL [Suspect]
     Indication: COLORECTAL CANCER
  3. LEUCOVORIN CALCIUM [Suspect]
     Indication: COLORECTAL CANCER
  4. OXALIPLATIN [Suspect]
     Indication: COLORECTAL CANCER

REACTIONS (2)
  - BRONCHOPNEUMONIA [None]
  - DYSPNOEA [None]
